FAERS Safety Report 10985866 (Version 1)
Quarter: 2015Q1

REPORT INFORMATION
  Report Type: Spontaneous
  Country: US (occurrence: None)
  Receive Date: 20150313
  Receipt Date: 20150313
  Transmission Date: 20150721
  Serious: Yes (Other)
  Sender: FDA-Public Use
  Company Number: 1354273

PATIENT
  Sex: Female

DRUGS (12)
  1. PERIACTIN (CYPROHEPTADINE HYDROCHLORIDE) [Concomitant]
  2. BENADRYL (UNITED STATES) (DIPHENHYDRAMINE HYDROCHLORIDE) [Concomitant]
  3. PREDNISONE. [Concomitant]
     Active Substance: PREDNISONE
  4. ADVAIR HFA (FLUTICASONE PROPIONATE, SALETEROL XINAFOATE) (INHALER) [Concomitant]
  5. VENTOLIN HFA (SALBUTAMOL SULFATE) (INHALER) [Concomitant]
  6. CROMOLYN SODIUM (SODIUM CROMOGLYCATE) [Concomitant]
  7. ALLEGRA (FEXOFENADINE HYDROCHLORIDE) [Concomitant]
  8. ZANTAC [Concomitant]
     Active Substance: RANITIDINE HYDROCHLORIDE
  9. BUDESONIDE. [Concomitant]
     Active Substance: BUDESONIDE
  10. XOLAIR [Suspect]
     Active Substance: OMALIZUMAB
     Indication: ASTHMA
     Dosage: 375 MG, 1 IN 2 WK
     Dates: start: 201311
  11. SINGULAIR (MONTELUKAST SODIUM) [Concomitant]
  12. ALBUTEROL SULFATE (SALBUTAMOL SULFATE) [Concomitant]
     Active Substance: ALBUTEROL SULFATE

REACTIONS (3)
  - Flushing [None]
  - Urticaria [None]
  - Pruritus [None]
